FAERS Safety Report 9784637 (Version 1)
Quarter: 2013Q4

REPORT INFORMATION
  Report Type: Spontaneous
  Country: JP (occurrence: JP)
  Receive Date: 20131226
  Receipt Date: 20131226
  Transmission Date: 20140711
  Serious: Yes (Other)
  Sender: FDA-Public Use
  Company Number: JP-PFIZER INC-2013369546

PATIENT
  Age: 8 Decade
  Sex: Female

DRUGS (1)
  1. LIPITOR [Suspect]
     Dosage: UINK
     Route: 048

REACTIONS (2)
  - Breast cancer [Unknown]
  - Haemorrhage [Unknown]
